FAERS Safety Report 7773387-X (Version None)
Quarter: 2011Q3

REPORT INFORMATION
  Report Type: 
  Country: None (occurrence: None)
  Receive Date: 20110922
  Receipt Date: 20110915
  Transmission Date: 20111222
  Serious: Yes (Hospitalization)
  Sender: FDA-Public Use
  Company Number: FR-UCBSA-039872

PATIENT
  Sex: Male
  Weight: 49 kg

DRUGS (6)
  1. TERCIAN [Concomitant]
     Indication: ABNORMAL BEHAVIOUR
     Dosage: 5 ORAL DROPS
  2. VIMPAT [Suspect]
     Indication: EPILEPSY
     Dosage: 15MG/ML; 60 MG
     Route: 048
     Dates: end: 20110101
  3. DEPAKENE [Concomitant]
     Indication: EPILEPSY
  4. TRILEPTAL [Concomitant]
     Indication: EPILEPSY
  5. CLONAZEPAM [Concomitant]
     Indication: EPILEPSY
     Dosage: 8 ORAL DROPS, THREE TIMES DAILY
  6. VIMPAT [Suspect]
     Route: 048
     Dates: start: 20110728

REACTIONS (6)
  - SOMNOLENCE [None]
  - NAUSEA [None]
  - VOMITING [None]
  - ABNORMAL BEHAVIOUR [None]
  - ERYTHROSIS [None]
  - HYPERHIDROSIS [None]
